FAERS Safety Report 9894628 (Version 2)
Quarter: 2014Q1

REPORT INFORMATION
  Report Type: Spontaneous
  Country: US (occurrence: US)
  Receive Date: 20140213
  Receipt Date: 20140213
  Transmission Date: 20141002
  Serious: Yes (Disabling)
  Sender: FDA-Public Use
  Company Number: US-GE HEALTHCARE MEDICAL DIAGNOSTICS-OSCN-PR-0801S-0046

PATIENT
  Age: 20 Year
  Sex: Female

DRUGS (4)
  1. OMNISCAN [Suspect]
     Indication: SUICIDE ATTEMPT
     Route: 042
     Dates: start: 20061001, end: 20061001
  2. OMNISCAN [Suspect]
     Indication: OVERDOSE
     Route: 042
     Dates: start: 20061013, end: 20061013
  3. OMNISCAN [Suspect]
     Indication: PORTAL VEIN THROMBOSIS
     Route: 042
     Dates: start: 20061018, end: 20061018
  4. OMNISCAN [Suspect]
     Route: 042
     Dates: start: 20061228, end: 20061228

REACTIONS (1)
  - Nephrogenic systemic fibrosis [Not Recovered/Not Resolved]
